FAERS Safety Report 10378299 (Version 1)
Quarter: 2014Q3

REPORT INFORMATION
  Report Type: Spontaneous
  Country: IT (occurrence: None)
  Receive Date: 20140807
  Receipt Date: 20140807
  Transmission Date: 20150326
  Serious: Yes (Other)
  Sender: FDA-Public Use
  Company Number: KAD201407-000858

PATIENT
  Age: 53 Year
  Sex: Male

DRUGS (3)
  1. INCIVO [Suspect]
     Active Substance: TELAPREVIR
     Indication: HEPATITIS C
     Dosage: FILM-COATED TABLET
     Route: 048
  2. INTERFERON ALFA-2A PEGYLATED [Suspect]
     Active Substance: PEGINTERFERON ALFA-2A
     Indication: HEPATITIS C
     Dosage: SOLUTION FOR INJECTION, 180 MCG, WEEKLY, SUBCUTANEOUS
     Route: 058
  3. RIBAVIRIN. [Suspect]
     Active Substance: RIBAVIRIN
     Indication: HEPATITIS C
     Dosage: HARD CAPSULE, ORAL
     Route: 048

REACTIONS (3)
  - Anaemia [None]
  - Fatigue [None]
  - Drug interaction [None]
